FAERS Safety Report 18498804 (Version 2)
Quarter: 2021Q1

REPORT INFORMATION
  Report Type: Spontaneous
  Country: US (occurrence: US)
  Receive Date: 20201112
  Receipt Date: 20210118
  Transmission Date: 20210419
  Serious: Yes (Life-Threatening, Hospitalization)
  Sender: FDA-Public Use
  Company Number: US-TEVA-2020-US-1846471

PATIENT
  Age: 48 Year
  Sex: Male

DRUGS (2)
  1. MYCOPHENOLATE [Suspect]
     Active Substance: MYCOPHENOLIC ACID
     Indication: ORGANISING PNEUMONIA
     Route: 065
  2. MYCOPHENOLATE [Suspect]
     Active Substance: MYCOPHENOLIC ACID
     Indication: RESPIRATORY FAILURE

REACTIONS (4)
  - Lipase increased [Unknown]
  - Troponin increased [Unknown]
  - Hepatic function abnormal [Unknown]
  - Pulmonary fibrosis [Unknown]
